FAERS Safety Report 8233443-9 (Version None)
Quarter: 2012Q1

REPORT INFORMATION
  Report Type: 
  Country: None (occurrence: None)
  Receive Date: 20120326
  Receipt Date: 20120314
  Transmission Date: 20120608
  Serious: Yes (Hospitalization, Other)
  Sender: FDA-Public Use
  Company Number: US-ELI_LILLY_AND_COMPANY-US201202001091

PATIENT
  Sex: Female
  Weight: 44.898 kg

DRUGS (17)
  1. CALCIUM CARBONATE [Concomitant]
     Dosage: UNK, UNKNOWN
     Route: 065
  2. FORTEO [Suspect]
     Indication: OSTEOPOROSIS
     Dosage: 20 UG, QD
     Route: 058
     Dates: start: 20110901
  3. PRILOSEC [Concomitant]
     Dosage: UNK, UNKNOWN
     Route: 065
  4. OMEPRA [Concomitant]
     Dosage: UNK, UNKNOWN
     Route: 065
  5. VITAMINS WITH MINERALS [Concomitant]
     Dosage: UNK, UNKNOWN
     Route: 065
  6. CITRACAL [Concomitant]
     Dosage: UNK, UNKNOWN
     Route: 065
  7. CALCIUM CITRATE [Concomitant]
     Dosage: UNK, UNKNOWN
     Route: 065
  8. MELATONIN [Concomitant]
     Dosage: UNK, UNKNOWN
     Route: 065
  9. FORTEO [Suspect]
     Dosage: 20 UG, QD
     Route: 058
     Dates: end: 20120109
  10. PRESERVISION EYE VITAMIN AND MINERAL SUPPL. [Concomitant]
     Dosage: UNK, UNKNOWN
     Route: 065
  11. VITAMIN E                          /00110501/ [Concomitant]
     Dosage: UNK, UNKNOWN
     Route: 065
  12. IRON [Concomitant]
     Dosage: UNK, UNKNOWN
     Route: 065
  13. ZINC SULFATE [Concomitant]
     Dosage: UNK, UNKNOWN
     Route: 065
  14. FISH OIL [Concomitant]
     Dosage: UNK, UNKNOWN
     Route: 065
  15. MANGANESE [Concomitant]
     Dosage: UNK, UNKNOWN
     Route: 065
  16. TYLENOL (CAPLET) [Concomitant]
     Dosage: UNK UNK, PRN
     Route: 065
  17. VITAMIN A [Concomitant]
     Dosage: UNK, UNKNOWN
     Route: 065

REACTIONS (1)
  - COLON CANCER STAGE II [None]
